FAERS Safety Report 23628478 (Version 1)
Quarter: 2024Q1

REPORT INFORMATION
  Report Type: Spontaneous
  Country: US (occurrence: US)
  Receive Date: 20240313
  Receipt Date: 20240313
  Transmission Date: 20240409
  Serious: No
  Sender: FDA-Public Use
  Company Number: US-SA-SAC20240311000580

PATIENT
  Sex: Female
  Weight: 70.3 kg

DRUGS (9)
  1. DUPIXENT [Suspect]
     Active Substance: DUPILUMAB
     Indication: Dermatitis atopic
     Dosage: 300 MG, QOW
     Route: 058
     Dates: start: 202201
  2. ADBRY [Suspect]
     Active Substance: TRALOKINUMAB-LDRM
     Indication: Dermatitis atopic
     Dosage: UNK
  3. ZOCOR [Concomitant]
     Active Substance: SIMVASTATIN
  4. DICLOFENAC SODIUM\MISOPROSTOL [Concomitant]
     Active Substance: DICLOFENAC SODIUM\MISOPROSTOL
  5. D3 +K2 [Concomitant]
  6. MINERALS\VITAMINS [Concomitant]
     Active Substance: MINERALS\VITAMINS
     Dosage: PRESERVISION AREDS 2148-113 TABLET
  7. ZOLPIDEM TARTRATE [Concomitant]
     Active Substance: ZOLPIDEM TARTRATE
  8. VITAMIN C [Concomitant]
     Active Substance: ASCORBIC ACID
  9. DIOVAN [Concomitant]
     Active Substance: VALSARTAN

REACTIONS (2)
  - Skin ulcer [Recovering/Resolving]
  - Condition aggravated [Recovering/Resolving]
